FAERS Safety Report 10446812 (Version 1)
Quarter: 2014Q3

REPORT INFORMATION
  Report Type: Spontaneous
  Country: US (occurrence: None)
  Receive Date: 20140909
  Receipt Date: 20140909
  Transmission Date: 20150326
  Serious: Yes (Hospitalization)
  Sender: FDA-Public Use
  Company Number: VAL_03352_2014

PATIENT
  Age: 16 Year
  Sex: Female

DRUGS (1)
  1. CARBAMAZEPINE 200 MG APOTEX [Suspect]
     Active Substance: CARBAMAZEPINE
     Indication: PRODUCT USED FOR UNKNOWN INDICATION
     Dosage: APPROXIMATELY 20 PILLS

REACTIONS (8)
  - Dystonia [None]
  - Intentional overdose [None]
  - Unresponsive to stimuli [None]
  - Electrocardiogram QRS complex prolonged [None]
  - Bundle branch block right [None]
  - Metabolic acidosis [None]
  - Toxicity to various agents [None]
  - Diabetes insipidus [None]
